FAERS Safety Report 11794361 (Version 3)
Quarter: 2015Q4

REPORT INFORMATION
  Report Type: Report from Study
  Country: US (occurrence: US)
  Receive Date: 20151202
  Receipt Date: 20151223
  Transmission Date: 20160305
  Serious: No
  Sender: FDA-Public Use
  Company Number: US-AMGEN-USASL2015126796

PATIENT
  Age: 40 Year
  Sex: Female

DRUGS (1)
  1. ENBREL [Suspect]
     Active Substance: ETANERCEPT
     Indication: RHEUMATOID ARTHRITIS
     Dosage: 50 MG, WEEKLY
     Route: 065
     Dates: start: 20151110

REACTIONS (10)
  - Drug dispensing error [Unknown]
  - Joint crepitation [Unknown]
  - Injection site pruritus [Unknown]
  - Injection site reaction [Unknown]
  - Joint swelling [Unknown]
  - Drug dose omission [Unknown]
  - Injection site swelling [Unknown]
  - Fatigue [Unknown]
  - Injection site erythema [Unknown]
  - Arthralgia [Not Recovered/Not Resolved]

NARRATIVE: CASE EVENT DATE: 2015
